FAERS Safety Report 10738395 (Version 1)
Quarter: 2015Q1

REPORT INFORMATION
  Report Type: Spontaneous
  Country: US (occurrence: US)
  Receive Date: 20150126
  Receipt Date: 20150126
  Transmission Date: 20150721
  Serious: No
  Sender: FDA-Public Use
  Company Number: US-TEVA-536771USA

PATIENT
  Age: 22 Year
  Sex: Female
  Weight: 59.02 kg

DRUGS (6)
  1. PARAGARD T 380A [Suspect]
     Active Substance: COPPER
     Indication: CONTRACEPTION
     Route: 015
     Dates: start: 20150108
  2. GINKO BILOBA [Concomitant]
     Indication: PHYTOTHERAPY
  3. FISH OIL [Concomitant]
     Active Substance: FISH OIL
     Indication: BLOOD CHOLESTEROL INCREASED
  4. VITAMIN D [Concomitant]
     Active Substance: CHOLECALCIFEROL
     Indication: VITAMIN D DEFICIENCY
  5. EFFEXOR [Concomitant]
     Active Substance: VENLAFAXINE HYDROCHLORIDE
     Indication: ANXIETY
  6. HAIR, SKIN, AND NAIL VITAMIN [Concomitant]
     Active Substance: UNSPECIFIED INGREDIENT
     Indication: VITAMIN SUPPLEMENTATION

REACTIONS (2)
  - Dysmenorrhoea [Not Recovered/Not Resolved]
  - Metrorrhagia [Recovered/Resolved]

NARRATIVE: CASE EVENT DATE: 20150108
